FAERS Safety Report 23418048 (Version 1)
Quarter: 2024Q1

REPORT INFORMATION
  Report Type: Spontaneous
  Country: CN (occurrence: CN)
  Receive Date: 20240118
  Receipt Date: 20240118
  Transmission Date: 20240410
  Serious: Yes (Hospitalization)
  Sender: FDA-Public Use
  Company Number: CN-Merck Healthcare KGaA-2024001408

PATIENT
  Age: 70 Year
  Sex: Female
  Weight: 82 kg

DRUGS (5)
  1. ERBITUX [Suspect]
     Active Substance: CETUXIMAB
     Indication: Lymphoma
     Dosage: 500 MG, OTHER, 1 EVERY 21 DAY
     Route: 042
     Dates: start: 20231215, end: 20231215
  2. CYCLOPHOSPHAMIDE [Suspect]
     Active Substance: CYCLOPHOSPHAMIDE
     Indication: Lymphoma
     Dosage: 1400 MG, OTHER, 1 EVERY 21 DAY
     Route: 042
     Dates: start: 20231216, end: 20231216
  3. EPIRUBICIN [Suspect]
     Active Substance: EPIRUBICIN
     Indication: Lymphoma
     Dosage: 90 MG, OTHER, 1 EVERY 21 DAY
     Route: 042
     Dates: start: 20231216, end: 20231216
  4. VINDESINE SULFATE [Suspect]
     Active Substance: VINDESINE SULFATE
     Indication: Lymphoma
     Dosage: 2.5 MG, OTHER, 1 EVERY 21 DAY
     Route: 042
     Dates: start: 20231216, end: 20231216
  5. PREDNISONE [Concomitant]
     Active Substance: PREDNISONE
     Indication: Lymphoma
     Dosage: 100 MG, UNKNOWN
     Dates: start: 20231215

REACTIONS (1)
  - Myelosuppression [Recovering/Resolving]

NARRATIVE: CASE EVENT DATE: 20231229
